FAERS Safety Report 6253975-2 (Version None)
Quarter: 2009Q3

REPORT INFORMATION
  Report Type: 
  Country: None (occurrence: None)
  Receive Date: 20090701
  Receipt Date: 20090701
  Transmission Date: 20100115
  Serious: No
  Sender: FDA-Public Use
  Company Number: None

PATIENT
  Age: 59 Year
  Sex: Female
  Weight: 73.4827 kg

DRUGS (1)
  1. ZICAM [Suspect]

REACTIONS (5)
  - AGEUSIA [None]
  - ANOSMIA [None]
  - APPLICATION SITE IRRITATION [None]
  - CAUSTIC INJURY [None]
  - RHINALGIA [None]
